FAERS Safety Report 19226325 (Version 2)
Quarter: 2021Q2

REPORT INFORMATION
  Report Type: Spontaneous
  Country: GR (occurrence: GR)
  Receive Date: 20210506
  Receipt Date: 20210618
  Transmission Date: 20210717
  Serious: Yes (Other)
  Sender: FDA-Public Use
  Company Number: GR-PFIZER INC-2021463714

PATIENT
  Age: 86 Year
  Sex: Male

DRUGS (3)
  1. XANAX [Suspect]
     Active Substance: ALPRAZOLAM
     Dosage: 0.25 MG
  2. XANAX [Suspect]
     Active Substance: ALPRAZOLAM
     Dosage: 0.125 MG
  3. XANAX [Suspect]
     Active Substance: ALPRAZOLAM
     Dosage: 0.5 MG TO 1 MG

REACTIONS (3)
  - Tremor [Unknown]
  - Syncope [Unknown]
  - Heart rate increased [Unknown]
